FAERS Safety Report 8965894 (Version 1)
Quarter: 2012Q4

REPORT INFORMATION
  Report Type: Spontaneous
  Country: US (occurrence: None)
  Receive Date: 20121206
  Receipt Date: 20121206
  Transmission Date: 20130627
  Serious: Yes (Life-Threatening, Hospitalization)
  Sender: FDA-Public Use
  Company Number: 100301-000037

PATIENT
  Age: 65 Year
  Sex: Female

DRUGS (1)
  1. VITADIL-2A [Suspect]
     Dosage: Once daily dermal
     Route: 061
     Dates: start: 20100222

REACTIONS (3)
  - Tachycardia [None]
  - Skin disorder [None]
  - Erythema [None]
